FAERS Safety Report 5018710-4 (Version None)
Quarter: 2006Q2

REPORT INFORMATION
  Report Type: 
  Country: None (occurrence: None)
  Receive Date: 20060606
  Receipt Date: 20060519
  Transmission Date: 20061013
  Serious: Yes (Life-Threatening, Hospitalization)
  Sender: FDA-Public Use
  Company Number: NL-ROCHE-450037

PATIENT
  Age: 68 Year
  Sex: Male

DRUGS (9)
  1. ROACCUTANE [Suspect]
     Dosage: DOSAGE REGIMEN REPORTED AS '2X20'
     Route: 048
     Dates: start: 20060324
  2. ROACCUTANE [Suspect]
     Route: 048
  3. INSULINE [Concomitant]
  4. AMLODIPINE [Concomitant]
  5. SELOKEEN [Concomitant]
     Dosage: DRUIG REPORTED AS 'METOPROLOLITARTRAS/SELOKEEN'
  6. SIMVASTATIN [Concomitant]
  7. ASCAL [Concomitant]
  8. OMEPRAZOL [Concomitant]
  9. ATACAND [Concomitant]

REACTIONS (2)
  - COMA [None]
  - HYPOGLYCAEMIA [None]
